FAERS Safety Report 17422500 (Version 2)
Quarter: 2020Q1

REPORT INFORMATION
  Report Type: Spontaneous
  Country: BR (occurrence: BR)
  Receive Date: 20200215
  Receipt Date: 20200219
  Transmission Date: 20200409
  Serious: Yes (Life-Threatening)
  Sender: FDA-Public Use
  Company Number: BR-ABBVIE-20P-020-3276573-00

PATIENT
  Sex: Female
  Weight: 72 kg

DRUGS (4)
  1. OMEPRAZOLE. [Concomitant]
     Active Substance: OMEPRAZOLE
     Indication: GASTRITIS
     Dosage: UNIT DOSE: 1 TABLET; IN THE MORNING; DOESN^T ALWAYS TAKE IT
     Route: 048
  2. PURAN [Concomitant]
     Active Substance: LEVOTHYROXINE SODIUM
     Indication: THYROID DISORDER
     Dosage: UNIT DOSE: 70 MICROGRAM, BEFORE BREAKFAST
     Route: 048
     Dates: start: 2000
  3. DIVALCON ER [Suspect]
     Active Substance: DIVALPROEX SODIUM
     Indication: SLEEP DISORDER THERAPY
     Dosage: UNIT DOSE: 250 MILLIGRAM, TAKEN ONLY ONCE; DRUG DISCONTINUED
     Route: 048
     Dates: start: 20200206, end: 20200206
  4. CARDIZEM [Concomitant]
     Active Substance: DILTIAZEM HYDROCHLORIDE
     Indication: CARDIAC DISORDER
     Dosage: 2 IN THE MORNING AND 1 AT NIGHT
     Route: 048

REACTIONS (12)
  - Near death experience [Unknown]
  - Heart rate decreased [Recovered/Resolved]
  - Product use in unapproved indication [Unknown]
  - Tremor [Unknown]
  - Hypophagia [Not Recovered/Not Resolved]
  - Abdominal distension [Not Recovered/Not Resolved]
  - Anaphylactoid reaction [Unknown]
  - Nausea [Not Recovered/Not Resolved]
  - Product use issue [Unknown]
  - Hepatic pain [Not Recovered/Not Resolved]
  - Somnolence [Unknown]
  - Drug hypersensitivity [Unknown]

NARRATIVE: CASE EVENT DATE: 20200206
